FAERS Safety Report 4394099-9 (Version None)
Quarter: 2004Q3

REPORT INFORMATION
  Report Type: 
  Country: None (occurrence: None)
  Receive Date: 20040708
  Receipt Date: 20040708
  Transmission Date: 20050211
  Serious: Yes (Disabling)
  Sender: FDA-Public Use
  Company Number: None

PATIENT
  Sex: Male
  Weight: 24.9478 kg

DRUGS (1)
  1. METHYLPHENIDATE HCL [Suspect]
     Dosage: 1 DAY

REACTIONS (2)
  - TIC [None]
  - VOCAL CORD DISORDER [None]
